FAERS Safety Report 12347561 (Version 2)
Quarter: 2016Q2

REPORT INFORMATION
  Report Type: Other
  Country: None (occurrence: US)
  Receive Date: 20160509
  Receipt Date: 20160513
  Transmission Date: 20160815
  Serious: Yes (Other)
  Sender: FDA-Public Use
  Company Number: US-ANTARES PHARMA, INC.-2016-LIT-ME-0267

PATIENT
  Age: 27 Year
  Sex: Female

DRUGS (1)
  1. METHOTREXATE [Suspect]
     Active Substance: METHOTREXATE
     Indication: OSTEOSARCOMA
     Dosage: 5.5 G/M2, UNK
     Route: 042

REACTIONS (3)
  - Nephropathy [Recovered/Resolved]
  - Crystal nephropathy [Recovered/Resolved]
  - Blood creatinine increased [Recovered/Resolved]
